FAERS Safety Report 9832229 (Version 2)
Quarter: 2014Q1

REPORT INFORMATION
  Report Type: Spontaneous
  Country: GB (occurrence: GB)
  Receive Date: 20140121
  Receipt Date: 20140206
  Transmission Date: 20141002
  Serious: Yes (Death, Other)
  Sender: FDA-Public Use
  Company Number: PHFR2014GB000804

PATIENT
  Age: 47 Year
  Sex: Male
  Weight: 72 kg

DRUGS (6)
  1. CLOZARIL [Suspect]
     Indication: SCHIZOPHRENIA
     Dosage: 500 MG, QD
     Route: 048
     Dates: start: 20020313
  2. CLOZARIL [Suspect]
     Dosage: 500 MG, QD
     Route: 048
  3. OMEPRAZOLE [Concomitant]
     Dosage: 20 MG, QD
     Route: 048
  4. DULOXETINE [Concomitant]
     Dosage: 60 MG, QD
     Route: 048
  5. MINOCYCLINE [Concomitant]
     Dosage: 100 MG, BID
     Route: 048
  6. PROPANTHELINE [Concomitant]
     Dosage: 15 MG, BID
     Route: 048

REACTIONS (2)
  - Death [Fatal]
  - Chest pain [Unknown]
